FAERS Safety Report 12483381 (Version 2)
Quarter: 2016Q4

REPORT INFORMATION
  Report Type: Report from Study
  Country: US (occurrence: US)
  Receive Date: 20160621
  Receipt Date: 20161024
  Transmission Date: 20170207
  Serious: No
  Sender: FDA-Public Use
  Company Number: PHHY2016US082448

PATIENT
  Age: 27 Year
  Sex: Female

DRUGS (1)
  1. GILENYA [Suspect]
     Active Substance: FINGOLIMOD HYDROCHLORIDE
     Indication: MULTIPLE SCLEROSIS
     Dosage: QD
     Route: 048

REACTIONS (10)
  - Headache [Not Recovered/Not Resolved]
  - High density lipoprotein decreased [Unknown]
  - Gastrointestinal pain [Unknown]
  - Cognitive disorder [Unknown]
  - Pain in extremity [Unknown]
  - Low density lipoprotein increased [Unknown]
  - Micturition urgency [Unknown]
  - Paraesthesia [Unknown]
  - Muscle spasticity [Unknown]
  - Tremor [Unknown]

NARRATIVE: CASE EVENT DATE: 20150309
